FAERS Safety Report 15227821 (Version 1)
Quarter: 2018Q3

REPORT INFORMATION
  Report Type: Spontaneous
  Country: FR (occurrence: FR)
  Receive Date: 20180801
  Receipt Date: 20180801
  Transmission Date: 20181010
  Serious: Yes (Other)
  Sender: FDA-Public Use
  Company Number: FR-SA-2018SA131431

PATIENT
  Age: 66 Year
  Sex: Female
  Weight: 126 kg

DRUGS (3)
  1. KARDEGIC [Concomitant]
     Active Substance: ASPIRIN DL-LYSINE
     Dosage: 1 DF,QD
  2. LOVENOX [Suspect]
     Active Substance: ENOXAPARIN SODIUM
     Indication: PROPHYLAXIS
     Dosage: 1 DF,BID
     Route: 058
     Dates: start: 20180418, end: 20180502
  3. LOVENOX [Suspect]
     Active Substance: ENOXAPARIN SODIUM
     Dosage: 1 DF,QD
     Route: 058
     Dates: start: 20180502, end: 20180531

REACTIONS (3)
  - Incorrect dose administered [Unknown]
  - Impaired healing [Recovering/Resolving]
  - Post procedural haemorrhage [Recovering/Resolving]
